FAERS Safety Report 6930083-6 (Version None)
Quarter: 2010Q3

REPORT INFORMATION
  Report Type: 
  Country: None (occurrence: None)
  Receive Date: 20100818
  Receipt Date: 20100810
  Transmission Date: 20110219
  Serious: Yes (Other)
  Sender: FDA-Public Use
  Company Number: CN-BAYER-201033868GPV

PATIENT
  Age: 53 Year
  Sex: Female

DRUGS (3)
  1. AVELOX [Suspect]
     Indication: LUNG INFECTION
     Dosage: TOTAL DAILY DOSE: 0.4 G
     Route: 048
  2. CEFACLOR [Concomitant]
     Indication: LUNG INFECTION
     Dosage: TOTAL DAILY DOSE: 750 MG
     Route: 048
  3. MUCOSOLVAN [Concomitant]
     Indication: LUNG INFECTION
     Dosage: TOTAL DAILY DOSE: 180 MG
     Route: 048

REACTIONS (5)
  - ARRHYTHMIA [None]
  - DIZZINESS [None]
  - EXTRASYSTOLES [None]
  - FEELING ABNORMAL [None]
  - PALPITATIONS [None]
